FAERS Safety Report 23411246 (Version 1)
Quarter: 2024Q1

REPORT INFORMATION
  Report Type: Spontaneous
  Country: US (occurrence: US)
  Receive Date: 20240117
  Receipt Date: 20240117
  Transmission Date: 20240409
  Serious: No
  Sender: FDA-Public Use
  Company Number: US-FERRINGPH-2023FE02665

PATIENT
  Age: 65 Year
  Sex: Male

DRUGS (1)
  1. CLENPIQ [Suspect]
     Active Substance: ANHYDROUS CITRIC ACID\MAGNESIUM OXIDE\SODIUM PICOSULFATE
     Indication: Bowel preparation
     Dosage: 2 BOTTLES 4PM AND SECOND AT 9PM
     Route: 065

REACTIONS (4)
  - Product use complaint [Unknown]
  - Diarrhoea [Unknown]
  - Proctalgia [Recovered/Resolved]
  - Product use issue [Unknown]
